FAERS Safety Report 18917025 (Version 6)
Quarter: 2021Q4

REPORT INFORMATION
  Report Type: Report from Study
  Country: FR (occurrence: FR)
  Receive Date: 20210219
  Receipt Date: 20211206
  Transmission Date: 20220303
  Serious: Yes (Death, Life-Threatening, Hospitalization, Other)
  Sender: FDA-Public Use
  Company Number: FR-BRISTOL-MYERS SQUIBB COMPANY-BMS-2021-015017

PATIENT
  Age: 83 Year
  Sex: Male
  Weight: 67 kg

DRUGS (4)
  1. APIXABAN [Suspect]
     Active Substance: APIXABAN
     Indication: Product used for unknown indication
     Dosage: 10 MILLIGRAM, BID
     Route: 065
     Dates: start: 20190211
  2. APIXABAN [Suspect]
     Active Substance: APIXABAN
     Dosage: 5 MILLIGRAM, BID
     Route: 048
     Dates: start: 20200821
  3. RUXOLITINIB [Suspect]
     Active Substance: RUXOLITINIB
     Indication: Myelofibrosis
     Dosage: 20 MILLIGRAM, DAILY
     Route: 048
     Dates: start: 20200325, end: 20200706
  4. RUXOLITINIB [Suspect]
     Active Substance: RUXOLITINIB
     Dosage: 25 MILLIGRAM, DAILY
     Route: 048
     Dates: start: 20200706, end: 20210204

REACTIONS (15)
  - COVID-19 pneumonia [Fatal]
  - General physical health deterioration [Fatal]
  - Dyspnoea [Fatal]
  - Anaemia [Recovering/Resolving]
  - Gastrointestinal haemorrhage [Recovered/Resolved]
  - Melaena [Recovered/Resolved]
  - Acute pulmonary oedema [Recovered/Resolved]
  - Pulmonary oedema [Recovered/Resolved]
  - Malnutrition [Unknown]
  - Pleural effusion [Not Recovered/Not Resolved]
  - Asthenia [Unknown]
  - Splenomegaly [Unknown]
  - Nausea [Unknown]
  - Pallor [Unknown]
  - Vomiting [Unknown]

NARRATIVE: CASE EVENT DATE: 20200821
